FAERS Safety Report 23850641 (Version 3)
Quarter: 2024Q2

REPORT INFORMATION
  Report Type: Spontaneous
  Country: US (occurrence: US)
  Receive Date: 20240513
  Receipt Date: 20240521
  Transmission Date: 20240716
  Serious: Yes (Other)
  Sender: FDA-Public Use
  Company Number: US-AMGEN-USASP2024092248

PATIENT
  Age: 68 Year
  Sex: Female

DRUGS (3)
  1. REPATHA [Suspect]
     Active Substance: EVOLOCUMAB
     Indication: Arteriosclerosis
     Dosage: 140 MILLIGRAM, Q2WK
     Route: 058
     Dates: start: 20240502
  2. VITAMIN D [Concomitant]
     Active Substance: VITAMIN D NOS
     Indication: Photosensitivity reaction
  3. ESTROGENS [Concomitant]
     Active Substance: ESTROGENS
     Dosage: ONCE EVERY COUPLE WEEKS

REACTIONS (6)
  - Hyperthyroidism [Unknown]
  - Feeling abnormal [Recovered/Resolved]
  - Chest discomfort [Not Recovered/Not Resolved]
  - Psychomotor hyperactivity [Not Recovered/Not Resolved]
  - Disturbance in attention [Not Recovered/Not Resolved]
  - Poor quality sleep [Not Recovered/Not Resolved]

NARRATIVE: CASE EVENT DATE: 20240501
